FAERS Safety Report 6219641-4 (Version None)
Quarter: 2009Q2

REPORT INFORMATION
  Report Type: 
  Country: None (occurrence: None)
  Receive Date: 20090609
  Receipt Date: 20090603
  Transmission Date: 20091009
  Serious: No
  Sender: FDA-Public Use
  Company Number: US-B.I. PHARMACEUTICALS,INC./RIDGEFIELD-2009-BP-06379BP

PATIENT
  Sex: Male
  Weight: 87 kg

DRUGS (7)
  1. FLOMAX [Suspect]
     Indication: BENIGN PROSTATIC HYPERPLASIA
     Dosage: .4MG
     Route: 048
     Dates: start: 20090301, end: 20090522
  2. GLUCOPHAGE [Concomitant]
     Dosage: 1500MG
     Dates: start: 20080411
  3. CRESTOR [Concomitant]
     Dosage: 10MG
     Dates: start: 20081009
  4. NORVASC [Concomitant]
     Dosage: 10MG
     Dates: start: 20050613
  5. ASPIRIN [Concomitant]
     Dosage: 81MG
     Dates: start: 20050613
  6. ATENOLOL [Concomitant]
     Dosage: 25MG
     Dates: start: 20050613
  7. NIASPAN [Concomitant]
     Dosage: 500MG
     Dates: start: 20050613

REACTIONS (6)
  - OEDEMA [None]
  - OEDEMA PERIPHERAL [None]
  - PALLOR [None]
  - PLATELET COUNT INCREASED [None]
  - RASH ERYTHEMATOUS [None]
  - RASH MACULAR [None]
